FAERS Safety Report 15620479 (Version 1)
Quarter: 2018Q4

REPORT INFORMATION
  Report Type: Other
  Country: US (occurrence: US)
  Receive Date: 20181115
  Receipt Date: 20181115
  Transmission Date: 20190205
  Serious: Yes (Death, Life-Threatening, Other)
  Sender: FDA-Public Use
  Company Number: US-ASTELLAS-2018US048625

PATIENT
  Age: 34 Year
  Sex: Female

DRUGS (82)
  1. MERONEM [Suspect]
     Active Substance: MEROPENEM
     Indication: ANTIBIOTIC THERAPY
     Dosage: 0.5 G, ONCE DAILY
     Route: 041
     Dates: start: 19960816
  2. OPIUM ALKALOIDS TOTAL [Suspect]
     Active Substance: OPIUM
     Indication: PAIN
     Route: 048
     Dates: start: 19960807, end: 19960812
  3. METOCLOPRAMIDE HYDROCHLORIDE. [Suspect]
     Active Substance: METOCLOPRAMIDE HYDROCHLORIDE
     Indication: PRODUCT USED FOR UNKNOWN INDICATION
     Dosage: UNK, UNKNOWN FREQ.
     Route: 041
     Dates: start: 19960804
  4. GRANULOCYTE MACROPHAGE COLONY STIM FACTOR [Suspect]
     Active Substance: GRANULOCYTE-MACROPHAGE COLONY-STIMULATING FACTOR
     Indication: PRODUCT USED FOR UNKNOWN INDICATION
     Dosage: UNK, UNKNOWN FREQ.
     Route: 058
     Dates: start: 19960804, end: 19960815
  5. URBASON                            /00049601/ [Concomitant]
     Active Substance: METHYLPREDNISOLONE
     Indication: PRODUCT USED FOR UNKNOWN INDICATION
     Dosage: UNK UNK, UNKNOWN FREQ.
     Route: 065
     Dates: end: 19960729
  6. FERRO-SANOL DUODENAL [Concomitant]
     Active Substance: FERROUS GLYCINE SULFATE
     Indication: PRODUCT USED FOR UNKNOWN INDICATION
     Dosage: UNK UNK, UNKNOWN FREQ.
     Route: 065
     Dates: end: 19960729
  7. AMBISOME [Suspect]
     Active Substance: AMPHOTERICIN B
     Indication: FUNGAL INFECTION
     Route: 041
     Dates: start: 19960816
  8. CYTARABINE. [Suspect]
     Active Substance: CYTARABINE
     Dosage: UNK UNK, UNKNOWN FREQ.
     Route: 042
     Dates: start: 19960803, end: 19960803
  9. VITALIPID ADULT [Suspect]
     Active Substance: ERGOCALCIFEROL\PHYTONADIONE\RETINOL\TOCOPHEROL
     Indication: PARENTERAL NUTRITION
     Route: 042
     Dates: start: 19960809, end: 19960816
  10. BIFITERAL [Suspect]
     Active Substance: LACTULOSE
     Indication: CONSTIPATION
     Dosage: UNK, UNKNOWN FREQ.
     Route: 048
     Dates: start: 19960813, end: 19960813
  11. DORMICUM /00634102/ [Suspect]
     Active Substance: MIDAZOLAM MALEATE
     Indication: SEDATION
     Dosage: UNK, UNKNOWN FREQ.
     Route: 041
     Dates: start: 19960818
  12. LEUCOVORIN                         /00566702/ [Suspect]
     Active Substance: LEUCOVORIN
     Indication: ANAEMIA FOLATE DEFICIENCY
     Route: 042
     Dates: start: 19960801, end: 19960801
  13. METHOTREXATE DISODIUM [Suspect]
     Active Substance: METHOTREXATE SODIUM
     Route: 038
     Dates: start: 19960802, end: 19960802
  14. HUMAN SERUM ALBUMIN [Suspect]
     Active Substance: ALBUMIN HUMAN
     Indication: BLOOD ALBUMIN DECREASED
     Route: 041
     Dates: start: 19960816, end: 19960817
  15. ANTRA                              /00661201/ [Suspect]
     Active Substance: OMEPRAZOLE
     Indication: PROPHYLAXIS
     Dates: start: 19960730, end: 19960804
  16. ANTRA                              /00661201/ [Suspect]
     Active Substance: OMEPRAZOLE
     Route: 042
     Dates: start: 19960806
  17. SUPRARENIN [Suspect]
     Active Substance: EPINEPHRINE
     Indication: SHOCK
     Route: 041
     Dates: start: 19960817
  18. DEXAMETHASON                       /00016001/ [Suspect]
     Active Substance: DEXAMETHASONE
     Indication: BURKITT^S LYMPHOMA
     Route: 038
     Dates: start: 19960730, end: 19960730
  19. AMOXICILLIN AND CLAVULANATE POTASSIUM [Suspect]
     Active Substance: AMOXICILLIN\CLAVULANATE POTASSIUM
     Indication: PRODUCT USED FOR UNKNOWN INDICATION
     Dosage: UNK, UNKNOWN FREQ.
     Route: 041
     Dates: start: 19960807, end: 19960811
  20. METRONIDAZOLE. [Suspect]
     Active Substance: METRONIDAZOLE
     Indication: ANTIBIOTIC THERAPY
     Route: 041
     Dates: start: 19960805, end: 19960809
  21. AMINOMEL [Suspect]
     Active Substance: AMINO ACIDS\MINERALS
     Indication: PARENTERAL NUTRITION
     Route: 042
     Dates: start: 19960809, end: 19960813
  22. DIFLUCAN [Suspect]
     Active Substance: FLUCONAZOLE
     Indication: CANDIDA INFECTION
     Route: 048
     Dates: start: 19960730, end: 19960816
  23. LASIX [Suspect]
     Active Substance: FUROSEMIDE
     Indication: FLUID RETENTION
     Route: 048
     Dates: start: 19960814, end: 19960814
  24. UROMITEXAN [Suspect]
     Active Substance: MESNA
     Indication: PROPHYLAXIS
     Route: 042
     Dates: start: 19960730, end: 19960804
  25. CLAFORAN [Suspect]
     Active Substance: CEFOTAXIME SODIUM
     Indication: ANTIBIOTIC THERAPY
     Dosage: UNK, UNKNOWN FREQ.
     Route: 041
     Dates: start: 19960805, end: 19960809
  26. DOLANTIN [Suspect]
     Active Substance: MEPERIDINE
     Indication: PAIN
     Route: 041
     Dates: start: 19960816, end: 19960816
  27. MAGNORBIN (MAGNESIUM ASCORBATE) [Suspect]
     Active Substance: MAGNESIUM ASCORBATE
     Indication: MAGNESIUM DEFICIENCY
     Route: 042
     Dates: start: 19960802
  28. ISOPTIN [Suspect]
     Active Substance: VERAPAMIL HYDROCHLORIDE
     Indication: HYPERTENSION
     Route: 041
     Dates: start: 19960817, end: 19960817
  29. CLINDAMYCIN HYDROCHLORIDE MONOHYDRATE. [Suspect]
     Active Substance: CLINDAMYCIN HYDROCHLORIDE MONOHYDRATE
     Indication: PRODUCT USED FOR UNKNOWN INDICATION
     Dosage: UNK, UNKNOWN FREQ.
     Route: 041
     Dates: start: 19960817, end: 19960817
  30. MORPHINE SULFATE. [Suspect]
     Active Substance: MORPHINE SULFATE
     Indication: PRODUCT USED FOR UNKNOWN INDICATION
     Dosage: UNK, UNKNOWN FREQ.
     Route: 041
     Dates: start: 19960808, end: 19960816
  31. AMINOMIX /03395601/ [Suspect]
     Active Substance: AMINO ACIDS\DEXTROSE\ELECTROLYTES NOS
     Indication: AMINO ACID METABOLISM DISORDER
     Route: 042
     Dates: start: 19960816, end: 19960816
  32. STEROFUNDIN [Concomitant]
     Active Substance: CALCIUM CHLORIDE\MAGNESIUM CHLORIDE\POTASSIUM CHLORIDE\SODIUM ACETATE\SODIUM CHLORIDE
     Indication: PRODUCT USED FOR UNKNOWN INDICATION
     Dosage: UNK UNK, UNKNOWN FREQ.
     Route: 065
     Dates: start: 19960730
  33. NATRIUMBICARBONATE BRAUN [Concomitant]
     Indication: PRODUCT USED FOR UNKNOWN INDICATION
     Dosage: UNK UNK, UNKNOWN FREQ.
     Route: 065
     Dates: start: 19960729, end: 19960731
  34. LIPOFUNDIN MCT [Suspect]
     Active Substance: MEDIUM-CHAIN TRIGLYCERIDES\SOYBEAN OIL
     Indication: PARENTERAL NUTRITION
     Dosage: UNK, UNKNOWN FREQ.
     Route: 042
     Dates: start: 19960809
  35. MULTIBIONTA /00111701/ [Suspect]
     Active Substance: VITAMINS
     Indication: HYPOVITAMINOSIS
     Route: 042
     Dates: start: 19960802, end: 19960816
  36. ALLOPURINOL. [Suspect]
     Active Substance: ALLOPURINOL
     Indication: BLOOD URIC ACID INCREASED
     Route: 048
     Dates: start: 19960729, end: 19960812
  37. SOBELIN SOLUBILE [Suspect]
     Active Substance: CLINDAMYCIN PHOSPHATE
     Indication: ANTIBIOTIC THERAPY
     Route: 042
     Dates: start: 19960817, end: 19960817
  38. TAVEGIL /00137202/ [Suspect]
     Active Substance: CLEMASTINE FUMARATE
     Indication: PRURITUS
     Route: 041
     Dates: start: 19960816
  39. PANTOZOL [Suspect]
     Active Substance: PANTOPRAZOLE SODIUM
     Indication: PROPHYLAXIS
     Route: 048
     Dates: start: 19960804, end: 19960806
  40. POTASSIUM CHLORIDE. [Concomitant]
     Active Substance: POTASSIUM CHLORIDE
     Indication: PRODUCT USED FOR UNKNOWN INDICATION
     Route: 065
     Dates: start: 19960816
  41. HUMAN ACTRAPID [Suspect]
     Active Substance: INSULIN HUMAN
     Indication: BLOOD GLUCOSE INCREASED
     Route: 058
     Dates: start: 19960816
  42. OPIUM ALKALOIDS TOTAL [Suspect]
     Active Substance: OPIUM
     Route: 048
     Dates: start: 19960817, end: 19960818
  43. DIPYRONE [Suspect]
     Active Substance: DIPYRONE
     Indication: PAIN
     Route: 041
     Dates: start: 19960811, end: 19960811
  44. LIQUEMINE [Suspect]
     Active Substance: HEPARIN SODIUM
     Indication: THROMBOSIS PROPHYLAXIS
     Dosage: UNK, UNKNOWN FREQ.
     Route: 058
     Dates: start: 19960806
  45. CIPROFLOXACIN HYDROCHLORIDE MONOHYDRATE [Suspect]
     Active Substance: CIPROFLOXACIN HYDROCHLORIDE
     Indication: ANTIBIOTIC THERAPY
     Dosage: UNK, UNKNOWN FREQ.
     Route: 041
     Dates: start: 19960817, end: 19960817
  46. GENTAMYCIN                         /00047101/ [Suspect]
     Active Substance: GENTAMICIN
     Indication: ANTIBIOTIC THERAPY
     Route: 041
     Dates: start: 19960805, end: 19960811
  47. ANCOTIL [Suspect]
     Active Substance: FLUCYTOSINE
     Dosage: UNK UNK, UNKNOWN FREQ.
     Route: 041
     Dates: start: 19960815
  48. MAGNORBIN (MAGNESIUM ASCORBATE) [Suspect]
     Active Substance: MAGNESIUM ASCORBATE
     Route: 042
     Dates: start: 19960806
  49. ZOFRAN [Suspect]
     Active Substance: ONDANSETRON HYDROCHLORIDE
     Indication: NAUSEA
     Route: 042
     Dates: start: 19960730, end: 19960809
  50. METHOTREXATE. [Suspect]
     Active Substance: METHOTREXATE
     Indication: BURKITT^S LYMPHOMA
     Route: 042
     Dates: start: 19960730, end: 19960730
  51. AMBISOME [Suspect]
     Active Substance: AMPHOTERICIN B
     Indication: CANDIDA INFECTION
  52. VANCOMYCIN [Suspect]
     Active Substance: VANCOMYCIN
     Indication: ANTIBIOTIC THERAPY
     Route: 041
     Dates: start: 19960811
  53. IMODIUM [Suspect]
     Active Substance: LOPERAMIDE HYDROCHLORIDE
     Indication: DIARRHOEA INFECTIOUS
     Dosage: 6 CAPSULE, ONCE DAILY
     Route: 048
     Dates: start: 19960731, end: 19960816
  54. DIPIDOLOR [Suspect]
     Active Substance: PIRITRAMIDE
     Indication: PAIN
     Route: 042
     Dates: start: 19960816
  55. FORTECORTIN                        /00016001/ [Suspect]
     Active Substance: DEXAMETHASONE
     Indication: BURKITT^S LYMPHOMA
     Route: 048
     Dates: start: 19960729, end: 19960812
  56. PRIMAXIN IV [Suspect]
     Active Substance: CILASTATIN SODIUM\IMIPENEM
     Indication: ANTIBIOTIC THERAPY
     Dosage: 0.5 G, ONCE DAILY
     Route: 041
     Dates: start: 19960816, end: 19960816
  57. DEXAMETHASON                       /00016001/ [Suspect]
     Active Substance: DEXAMETHASONE
     Route: 038
     Dates: start: 19960802, end: 19960802
  58. PASPERTIN                          /00041902/ [Suspect]
     Active Substance: METOCLOPRAMIDE HYDROCHLORIDE
     Indication: GASTROINTESTINAL DISORDER
     Route: 042
     Dates: start: 19960804, end: 19960805
  59. VERGENTAN [Suspect]
     Active Substance: ALIZAPRIDE HYDROCHLORIDE
     Indication: NAUSEA
     Route: 042
     Dates: start: 19960802, end: 19960802
  60. SOLU-DECORTIN-H [Suspect]
     Active Substance: PREDNISOLONE SODIUM SUCCINATE
     Indication: PRURITUS
     Route: 041
     Dates: start: 19960817, end: 19960817
  61. SODIUM CHLORIDE. [Concomitant]
     Active Substance: SODIUM CHLORIDE
     Indication: PRODUCT USED FOR UNKNOWN INDICATION
     Dosage: UNK UNK, UNKNOWN FREQ.
     Route: 065
     Dates: start: 19960802, end: 19960816
  62. VINDESINE [Suspect]
     Active Substance: VINDESINE
     Indication: BURKITT^S LYMPHOMA
     Route: 042
     Dates: start: 19960730, end: 19960730
  63. METHOTREXATE DISODIUM [Suspect]
     Active Substance: METHOTREXATE SODIUM
     Indication: BURKITT^S LYMPHOMA
     Route: 042
     Dates: start: 19960730, end: 19960730
  64. PSYQUIL /00046401/ [Suspect]
     Active Substance: TRIFLUPROMAZINE
     Indication: RESTLESSNESS
     Route: 042
     Dates: start: 19960816
  65. ANCOTIL [Suspect]
     Active Substance: FLUCYTOSINE
     Indication: FUNGAL INFECTION
     Route: 042
     Dates: start: 19960814
  66. PASPERTIN                          /00041902/ [Suspect]
     Active Substance: METOCLOPRAMIDE HYDROCHLORIDE
     Route: 042
     Dates: start: 19960814
  67. NOVALGIN                           /00169801/ [Suspect]
     Active Substance: ACETAMINOPHEN\CAFFEINE\PROPYPHENAZONE
     Indication: PAIN
     Route: 042
     Dates: start: 19960819, end: 19960819
  68. CYTARABINE. [Suspect]
     Active Substance: CYTARABINE
     Indication: BURKITT^S LYMPHOMA
     Route: 042
     Dates: start: 19960730, end: 19960730
  69. CYTARABINE. [Suspect]
     Active Substance: CYTARABINE
     Route: 042
     Dates: start: 19960802, end: 19960802
  70. PARACETAMOL [Suspect]
     Active Substance: ACETAMINOPHEN
     Indication: PAIN
     Dosage: UNK, UNKNOWN FREQ.
     Route: 048
     Dates: start: 19960805, end: 19960805
  71. RIOPAN                             /00429801/ [Concomitant]
     Indication: PROPHYLAXIS
     Route: 048
     Dates: start: 19960804, end: 19960804
  72. DOPAMIN /00360702/ [Suspect]
     Active Substance: DOPAMINE HYDROCHLORIDE
     Indication: SHOCK
     Route: 041
     Dates: start: 19960817
  73. NUTRIFLEX BASAL [Suspect]
     Active Substance: AMINO ACIDS\DEXTROSE\ELECTROLYTES NOS
     Indication: PARENTERAL NUTRITION
     Dosage: UNK UNK, UNKNOWN FREQ.
     Route: 042
     Dates: start: 19960802, end: 19960804
  74. LEUCOMAX [Suspect]
     Active Substance: MOLGRAMOSTIM
     Indication: INFECTION PROPHYLAXIS
     Route: 058
     Dates: start: 19960804, end: 19960815
  75. DEXAMETHASON                       /00016001/ [Suspect]
     Active Substance: DEXAMETHASONE
     Route: 048
     Dates: start: 19960730, end: 19960803
  76. IFOSFAMIDE. [Suspect]
     Active Substance: IFOSFAMIDE
     Indication: BURKITT^S LYMPHOMA
     Route: 042
     Dates: start: 19960730, end: 19960803
  77. NEUPOGEN [Suspect]
     Active Substance: FILGRASTIM
     Indication: NEUTROPENIA
     Route: 058
     Dates: start: 19960816, end: 19960817
  78. MST                                /00036302/ [Suspect]
     Active Substance: MORPHINE SULFATE
     Indication: PAIN
     Dosage: UNK, UNKNOWN FREQ.
     Route: 042
     Dates: start: 19960808, end: 19960816
  79. TRIFLUPROMAZINE [Suspect]
     Active Substance: TRIFLUPROMAZINE
     Indication: PRODUCT USED FOR UNKNOWN INDICATION
     Dosage: UNK, UNKNOWN FREQ.
     Route: 041
     Dates: start: 19960816
  80. AMPHO MORONAL [Suspect]
     Active Substance: AMPHOTERICIN B
     Indication: CANDIDA INFECTION
     Route: 048
     Dates: start: 19960729, end: 19960816
  81. GLUCOSE INJECTION [Concomitant]
     Active Substance: DEXTROSE
     Indication: PRODUCT USED FOR UNKNOWN INDICATION
     Dosage: UNK UNK, UNKNOWN FREQ.
     Route: 065
     Dates: start: 19960817, end: 19960817
  82. URALYT U                           /06402701/ [Concomitant]
     Indication: PRODUCT USED FOR UNKNOWN INDICATION
     Dosage: UNK UNK, UNKNOWN FREQ.
     Route: 065
     Dates: start: 19960729, end: 19960731

REACTIONS (4)
  - Shock [Fatal]
  - Toxic epidermal necrolysis [Fatal]
  - Stevens-Johnson syndrome [Fatal]
  - Pruritus [Fatal]

NARRATIVE: CASE EVENT DATE: 19960816
